FAERS Safety Report 6876663-8 (Version None)
Quarter: 2010Q3

REPORT INFORMATION
  Report Type: 
  Country: None (occurrence: None)
  Receive Date: 20100727
  Receipt Date: 20100712
  Transmission Date: 20110219
  Serious: Yes (Death)
  Sender: FDA-Public Use
  Company Number: US-ELI_LILLY_AND_COMPANY-US201007002728

PATIENT
  Age: 60 Year
  Sex: Female

DRUGS (5)
  1. CYMBALTA [Suspect]
     Dosage: 90 MG, UNK
     Dates: end: 20100701
  2. WEIGHT LOSS ACCELERATE [Concomitant]
     Indication: WEIGHT DECREASED
  3. OTHER ANTIHYPERTENSIVES [Concomitant]
     Indication: BLOOD PRESSURE
  4. VITAMIN B-12 [Concomitant]
  5. LAXATIVES [Concomitant]

REACTIONS (1)
  - DEATH [None]
